FAERS Safety Report 10086068 (Version 1)
Quarter: 2014Q2

REPORT INFORMATION
  Report Type: Spontaneous
  Country: DE (occurrence: DE)
  Receive Date: 20140418
  Receipt Date: 20140418
  Transmission Date: 20141212
  Serious: Yes (Congenital Anomaly, Other)
  Sender: FDA-Public Use
  Company Number: DE-DRREDDYS-GER/GER/14/0039780

PATIENT
  Age: 1 Day
  Sex: Male
  Weight: 3.56 kg

DRUGS (2)
  1. SERTRALINE [Suspect]
     Indication: PRODUCT USED FOR UNKNOWN INDICATION
     Dosage: 150 [MG/D ]
     Route: 064
     Dates: start: 20121216, end: 20130919
  2. FOLIC ACID [Concomitant]
     Indication: PRODUCT USED FOR UNKNOWN INDICATION
     Route: 064

REACTIONS (2)
  - Hypospadias [Not Recovered/Not Resolved]
  - Foetal exposure during pregnancy [Unknown]
